FAERS Safety Report 11755007 (Version 1)
Quarter: 2015Q4

REPORT INFORMATION
  Report Type: Spontaneous
  Country: GB (occurrence: GB)
  Receive Date: 20151119
  Receipt Date: 20151119
  Transmission Date: 20160304
  Serious: Yes (Death, Other)
  Sender: FDA-Public Use
  Company Number: GB-JNJFOC-20151115891

PATIENT
  Sex: Female

DRUGS (1)
  1. TRABECTEDIN [Suspect]
     Active Substance: TRABECTEDIN
     Indication: ANGIOSARCOMA
     Route: 042

REACTIONS (3)
  - Infection [Fatal]
  - Sepsis [Unknown]
  - Renal impairment [Unknown]
